FAERS Safety Report 12836770 (Version 2)
Quarter: 2016Q4

REPORT INFORMATION
  Report Type: Report from Study
  Country: US (occurrence: US)
  Receive Date: 20161011
  Receipt Date: 20161107
  Transmission Date: 20170207
  Serious: Yes (Hospitalization)
  Sender: FDA-Public Use
  Company Number: US-B.I. PHARMACEUTICALS,INC./RIDGEFIELD-2015-BI-58997BP

PATIENT
  Sex: Male

DRUGS (1)
  1. OFEV [Suspect]
     Active Substance: NINTEDANIB
     Indication: IDIOPATHIC PULMONARY FIBROSIS
     Route: 048
     Dates: start: 20150924

REACTIONS (11)
  - Gastrointestinal polyp haemorrhage [Unknown]
  - Dyspnoea [Unknown]
  - Productive cough [Unknown]
  - Back disorder [Unknown]
  - Depression [Unknown]
  - Cough [Unknown]
  - Back pain [Unknown]
  - Nephrolithiasis [Unknown]
  - Oxygen saturation decreased [Unknown]
  - Diarrhoea [Unknown]
  - Decreased appetite [Unknown]
